FAERS Safety Report 10217907 (Version 3)
Quarter: 2014Q2

REPORT INFORMATION
  Report Type: Report from Study
  Country: BE (occurrence: BE)
  Receive Date: 20140605
  Receipt Date: 20140626
  Transmission Date: 20141212
  Serious: Yes (Life-Threatening, Hospitalization)
  Sender: FDA-Public Use
  Company Number: BE-ROCHE-792397

PATIENT
  Age: 74 Year
  Sex: Male
  Weight: 91.3 kg

DRUGS (40)
  1. OBINUTUZUMAB [Suspect]
     Indication: NON-HODGKIN^S LYMPHOMA
     Dosage: DOSE CONCENTRATION: 4 MG/ML. DATE OF MOST RECENT DOSE  PRIOR TO SAE: 22 AUGUST 2011, LAST DOSE: 25 J
     Route: 042
  2. BENDAMUSTINE [Suspect]
     Indication: NON-HODGKIN^S LYMPHOMA
     Dosage: DATE OF LAST DOSE PRIOR TO SAE: 22 AUGUST 2011.LAST DOSE OF BENDAMUSTINE TAKEN: 185.56MG, LAST DOSE:
     Route: 042
  3. BELSAR [Concomitant]
     Indication: HYPERTENSION
     Route: 065
     Dates: end: 20110824
  4. BELSAR [Concomitant]
     Route: 065
     Dates: start: 20111005
  5. DAFALGAN [Concomitant]
     Indication: BACK PAIN
     Route: 065
     Dates: end: 20110816
  6. DAFALGAN [Concomitant]
     Indication: PYREXIA
     Route: 065
     Dates: start: 20110725, end: 20110725
  7. DAFALGAN [Concomitant]
     Route: 065
     Dates: start: 20110801, end: 20110801
  8. DAFALGAN [Concomitant]
     Route: 065
     Dates: start: 20110808, end: 20110808
  9. DAFALGAN [Concomitant]
     Route: 065
     Dates: start: 20120822, end: 20120822
  10. ZYLORIC [Concomitant]
     Route: 065
     Dates: start: 20110725, end: 20110801
  11. ZYLORIC [Concomitant]
     Route: 065
     Dates: start: 20111124
  12. ZOFRAN [Concomitant]
     Route: 065
     Dates: start: 20110725, end: 20110728
  13. ZOFRAN [Concomitant]
     Route: 065
     Dates: start: 20110822, end: 20110825
  14. LITICAN [Concomitant]
     Route: 065
     Dates: start: 20110725, end: 20110725
  15. LITICAN [Concomitant]
     Route: 065
     Dates: start: 20110801, end: 20110801
  16. LITICAN [Concomitant]
     Route: 065
     Dates: start: 20110808, end: 20110808
  17. LITICAN [Concomitant]
     Route: 065
     Dates: start: 20110822, end: 20110822
  18. ZANTAC [Concomitant]
     Route: 065
     Dates: start: 20110725, end: 20110725
  19. ZANTAC [Concomitant]
     Route: 065
     Dates: start: 20110823, end: 20120109
  20. PERFUSALGAN [Concomitant]
     Indication: PYREXIA
     Route: 065
     Dates: start: 20110823, end: 20110823
  21. XALATAN [Concomitant]
     Indication: GLAUCOMA
     Route: 065
     Dates: start: 201107, end: 20111205
  22. TIMABAK [Concomitant]
     Indication: GLAUCOMA
     Route: 065
     Dates: start: 20110808, end: 20111205
  23. AMUKIN [Concomitant]
     Indication: PYREXIA
     Route: 065
     Dates: start: 20110823, end: 20110823
  24. MERONEM [Concomitant]
     Indication: PYREXIA
     Route: 065
     Dates: start: 20110823, end: 20110826
  25. LANOXIN [Concomitant]
     Indication: ATRIAL FIBRILLATION
     Route: 065
     Dates: start: 20110823, end: 20110825
  26. EMCONCOR [Concomitant]
     Route: 065
     Dates: start: 20110825
  27. CLEXANE [Concomitant]
     Route: 065
     Dates: start: 20110824, end: 20110922
  28. MAGNESIUM SULPHATE [Concomitant]
     Route: 065
     Dates: start: 20110824, end: 20110824
  29. DIPRIVAN [Concomitant]
     Dosage: 1%
     Route: 065
     Dates: start: 20110825, end: 20110825
  30. ZYRTEC [Concomitant]
     Indication: INFUSION RELATED REACTION
     Route: 065
     Dates: start: 20110725, end: 20110725
  31. ZYRTEC [Concomitant]
     Route: 065
     Dates: start: 20120801, end: 20120801
  32. ZYRTEC [Concomitant]
     Route: 065
     Dates: start: 20120808, end: 20120808
  33. ZYRTEC [Concomitant]
     Route: 065
     Dates: start: 20120822, end: 20120822
  34. AVELOX [Concomitant]
     Indication: COUGH
     Route: 065
     Dates: start: 201205, end: 20120530
  35. AVELOX [Concomitant]
     Route: 065
     Dates: start: 201207, end: 201207
  36. AMOXICILLIN [Concomitant]
     Indication: COUGH
     Route: 065
     Dates: start: 201207, end: 201207
  37. PARACODEINE [Concomitant]
     Indication: COUGH
     Route: 065
     Dates: start: 20120531, end: 20120726
  38. LITICAN [Concomitant]
     Indication: PROPHYLAXIS OF NAUSEA AND VOMITING
     Route: 065
     Dates: start: 20110808, end: 20110808
  39. TERBINAFINE [Concomitant]
     Route: 065
     Dates: start: 201312
  40. MOTILIUM [Concomitant]
     Indication: NAUSEA
     Route: 065
     Dates: start: 201311, end: 20131112

REACTIONS (5)
  - Anaphylactic shock [Recovered/Resolved]
  - Infusion related reaction [Recovered/Resolved]
  - Diarrhoea [Recovered/Resolved]
  - Infusion related reaction [Recovered/Resolved]
  - Atrial fibrillation [Recovered/Resolved]
